FAERS Safety Report 15607366 (Version 1)
Quarter: 2018Q4

REPORT INFORMATION
  Report Type: Spontaneous
  Country: US (occurrence: US)
  Receive Date: 20181112
  Receipt Date: 20181112
  Transmission Date: 20190205
  Serious: No
  Sender: FDA-Public Use
  Company Number: US-009507513-1811USA003390

PATIENT
  Sex: Female

DRUGS (1)
  1. CLOTRIMAZOLE (+) BETAMETHASONE DIPROPIONATE [Suspect]
     Active Substance: BETAMETHASONE DIPROPIONATE\CLOTRIMAZOLE
     Indication: THERAPEUTIC SKIN CARE TOPICAL
     Dosage: UNK
     Route: 061
     Dates: start: 20181029

REACTIONS (2)
  - Drug ineffective [Unknown]
  - Pruritus [Unknown]

NARRATIVE: CASE EVENT DATE: 20181101
